FAERS Safety Report 20986397 (Version 1)
Quarter: 2022Q2

REPORT INFORMATION
  Report Type: Spontaneous
  Country: US (occurrence: US)
  Receive Date: 20220621
  Receipt Date: 20220621
  Transmission Date: 20220721
  Serious: Yes (Other)
  Sender: FDA-Public Use
  Company Number: US-UCBSA-2022033965

PATIENT
  Age: 23 Year
  Sex: Male

DRUGS (2)
  1. BRIVIACT [Suspect]
     Active Substance: BRIVARACETAM
     Indication: Seizure
     Dosage: 100 MILLIGRAM, 2X/DAY (BID)
     Dates: start: 2022
  2. BRIVIACT [Suspect]
     Active Substance: BRIVARACETAM
     Dosage: 112.5 MILLIGRAM, 2X/DAY (BID)
     Dates: start: 2022

REACTIONS (4)
  - Seizure [Unknown]
  - Overdose [Unknown]
  - Product use issue [Unknown]
  - Wrong technique in product usage process [Unknown]

NARRATIVE: CASE EVENT DATE: 20220413
